FAERS Safety Report 25870384 (Version 1)
Quarter: 2025Q4

REPORT INFORMATION
  Report Type: Report from Study
  Country: US (occurrence: US)
  Receive Date: 20251001
  Receipt Date: 20251001
  Transmission Date: 20260117
  Serious: No
  Sender: DR REDDYS
  Company Number: US-DRL-USA-USA/2025/09/014427

PATIENT
  Sex: Female
  Weight: 45.18 kg

DRUGS (4)
  1. JAVYGTOR [Suspect]
     Active Substance: SAPROPTERIN DIHYDROCHLORIDE
     Indication: Phenylketonuria
     Dosage: 100 MG POWDER+ 500 MG POWDER, TOTAL DOSE= 800 MG
     Route: 048
  2. JAVYGTOR [Suspect]
     Active Substance: SAPROPTERIN DIHYDROCHLORIDE
     Dosage: 100 MG POWDER+ 500 MG POWDER, TOTAL DOSE= 1700 MG
     Route: 048
  3. JAVYGTOR [Suspect]
     Active Substance: SAPROPTERIN DIHYDROCHLORIDE
     Indication: Phenylketonuria
     Dosage: 100 MG POWDER+ 500 MG POWDER, TOTAL DOSE= 800 MG
     Route: 048
  4. JAVYGTOR [Suspect]
     Active Substance: SAPROPTERIN DIHYDROCHLORIDE
     Dosage: 100 MG POWDER+ 500 MG POWDER, TOTAL DOSE= 1700 MG
     Route: 048

REACTIONS (2)
  - Overdose [Unknown]
  - Product prescribing error [Unknown]
